FAERS Safety Report 6497814-3 (Version None)
Quarter: 2009Q4

REPORT INFORMATION
  Report Type: 
  Country: None (occurrence: None)
  Receive Date: 20091215
  Receipt Date: 20091207
  Transmission Date: 20100525
  Serious: Yes (Other)
  Sender: FDA-Public Use
  Company Number: US-ROCHE-673293

PATIENT
  Age: 81 Year
  Sex: Female

DRUGS (1)
  1. BONIVA [Suspect]
     Indication: OSTEOPOROSIS
     Route: 048
     Dates: start: 20090801, end: 20091202

REACTIONS (5)
  - ARTHRALGIA [None]
  - BACK PAIN [None]
  - DIARRHOEA [None]
  - KNEE ARTHROPLASTY [None]
  - PAIN IN EXTREMITY [None]
